FAERS Safety Report 24040161 (Version 1)
Quarter: 2024Q3

REPORT INFORMATION
  Report Type: Spontaneous
  Country: US (occurrence: None)
  Receive Date: 20240701
  Receipt Date: 20240701
  Transmission Date: 20241017
  Serious: No
  Sender: Public
  Company Number: None

PATIENT
  Sex: Female

DRUGS (19)
  1. NUZYRA [Suspect]
     Active Substance: OMADACYCLINE
     Indication: Mycobacterial infection
     Dosage: FREQUENCY : DAILY;?
     Route: 048
     Dates: start: 20240626
  2. ALBUTEROL NEBULIZATION [Concomitant]
  3. ALENDRONATE [Concomitant]
     Active Substance: ALENDRONATE SODIUM
  4. ARIKAYCE [Concomitant]
     Active Substance: AMIKACIN
  5. AMLODIPINE [Concomitant]
     Active Substance: AMLODIPINE BESYLATE
  6. ATORVASTATIN [Concomitant]
     Active Substance: ATORVASTATIN
  7. AZITHROMYCIN [Concomitant]
     Active Substance: AZITHROMYCIN
  8. CLOFAZIMINE [Concomitant]
     Active Substance: CLOFAZIMINE
  9. FLUTICASONE [Concomitant]
     Active Substance: FLUTICASONE
  10. MONTELUKAST [Concomitant]
     Active Substance: MONTELUKAST SODIUM
  11. QUETIAPINE [Concomitant]
     Active Substance: QUETIAPINE
  12. SERTRALINE [Concomitant]
     Active Substance: SERTRALINE HYDROCHLORIDE
  13. WIXELA INHUB [Concomitant]
     Active Substance: FLUTICASONE PROPIONATE\SALMETEROL XINAFOATE
  14. CALCIUM [Concomitant]
     Active Substance: CALCIUM
  15. VITAMIN C [Concomitant]
     Active Substance: ASCORBIC ACID
  16. COENZYME Q10 [Concomitant]
     Active Substance: DIETARY SUPPLEMENT\UBIDECARENONE
  17. MELANTONIN [Concomitant]
  18. OCUVITE [Concomitant]
     Active Substance: VITAMINS
  19. PROBIOTICS NOS [Concomitant]
     Active Substance: PROBIOTICS NOS

REACTIONS (3)
  - Vomiting [None]
  - Cough [None]
  - Diarrhoea [None]

NARRATIVE: CASE EVENT DATE: 20240626
